FAERS Safety Report 7091474-9 (Version None)
Quarter: 2010Q4

REPORT INFORMATION
  Report Type: 
  Country: None (occurrence: None)
  Receive Date: 20101109
  Receipt Date: 20101102
  Transmission Date: 20110411
  Serious: Yes (Other)
  Sender: FDA-Public Use
  Company Number: IT-GENZYME-FABR-1001453

PATIENT

DRUGS (3)
  1. FABRAZYME [Suspect]
     Indication: FABRY'S DISEASE
     Dosage: 0.5 MG/KG, UNK
     Route: 042
     Dates: start: 20030131
  2. FABRAZYME [Suspect]
     Dosage: 2.0 MG/KG, UNK
     Route: 042
     Dates: start: 20090101
  3. TRIATEC [Concomitant]
     Dosage: 5 MG, UNK

REACTIONS (1)
  - RENAL IMPAIRMENT [None]
